FAERS Safety Report 19889406 (Version 1)
Quarter: 2021Q3

REPORT INFORMATION
  Report Type: Spontaneous
  Country: US (occurrence: US)
  Receive Date: 20210927
  Receipt Date: 20210927
  Transmission Date: 20211014
  Serious: Yes (Other)
  Sender: FDA-Public Use
  Company Number: US-ASTELLAS-2021US026029

PATIENT
  Sex: Female

DRUGS (1)
  1. PADCEV [Suspect]
     Active Substance: ENFORTUMAB VEDOTIN-EJFV
     Indication: TRANSITIONAL CELL CARCINOMA
     Dosage: UNK, OTHER 2 WEEKS ON AND 1 WEEK OFF
     Route: 042
     Dates: start: 2021, end: 202105

REACTIONS (6)
  - Neuropathy peripheral [Recovering/Resolving]
  - Weight decreased [Unknown]
  - Asthenia [Unknown]
  - Gait disturbance [Recovering/Resolving]
  - Inappropriate schedule of product administration [Unknown]
  - Vomiting [Unknown]

NARRATIVE: CASE EVENT DATE: 2021
